FAERS Safety Report 8027590-4 (Version None)
Quarter: 2011Q4

REPORT INFORMATION
  Report Type: 
  Country: None (occurrence: None)
  Receive Date: 20111130
  Receipt Date: 20110923
  Transmission Date: 20120403
  Serious: Yes (Other)
  Sender: FDA-Public Use
  Company Number: US201109007211

PATIENT
  Age: 55 Year
  Sex: Female

DRUGS (1)
  1. BYETTA [Suspect]
     Indication: PRODUCT USED FOR UNKNOWN INDICATION
     Dosage: 10 UG, BID

REACTIONS (4)
  - DECREASED APPETITE [None]
  - RENAL FAILURE ACUTE [None]
  - FLUID INTAKE REDUCED [None]
  - WEIGHT DECREASED [None]
